FAERS Safety Report 5841232-5 (Version None)
Quarter: 2008Q3

REPORT INFORMATION
  Report Type: 
  Country: None (occurrence: None)
  Receive Date: 20080812
  Receipt Date: 20080804
  Transmission Date: 20090109
  Serious: Yes (Other)
  Sender: FDA-Public Use
  Company Number: PHHY2008IL16793

PATIENT

DRUGS (2)
  1. EXELON [Suspect]
     Indication: DEMENTIA ALZHEIMER'S TYPE
     Dosage: 4.5 MG, BID
     Route: 048
  2. EXELON [Suspect]
     Dosage: 3 MG, BID
     Route: 048

REACTIONS (2)
  - COGNITIVE DISORDER [None]
  - SALIVARY HYPERSECRETION [None]
